FAERS Safety Report 8458668-9 (Version None)
Quarter: 2012Q2

REPORT INFORMATION
  Report Type: 
  Country: None (occurrence: None)
  Receive Date: 20120622
  Receipt Date: 20120619
  Transmission Date: 20120825
  Serious: Yes (Death, Hospitalization)
  Sender: FDA-Public Use
  Company Number: FR-BAYER-200942765GPV

PATIENT
  Age: 59 Year
  Sex: Male
  Weight: 120 kg

DRUGS (4)
  1. PROPRANOLOL [Concomitant]
     Indication: HYPERTENSION
     Dosage: 160 MG (DAILY DOSE), , ORAL
     Route: 048
  2. NEXAVAR [Suspect]
     Indication: HEPATIC NEOPLASM MALIGNANT
     Dosage: 800 MG (DAILY DOSE), , ORAL
     Route: 048
     Dates: start: 20090926, end: 20091104
  3. GLUCOPHAGE [Concomitant]
     Indication: DIABETES MELLITUS
     Dosage: 1 G (DAILY DOSE), , ORAL
     Route: 048
     Dates: start: 20090926
  4. LORAZEPAM [Concomitant]
     Dosage: 3 MG (DAILY DOSE), , ORAL
     Route: 048
     Dates: start: 20090918

REACTIONS (6)
  - ENCEPHALOPATHY [None]
  - HEPATIC FAILURE [None]
  - FATIGUE [None]
  - HEPATIC NEOPLASM MALIGNANT [None]
  - HEPATIC CIRRHOSIS [None]
  - ASCITES [None]
